FAERS Safety Report 9706944 (Version 1)
Quarter: 2013Q4

REPORT INFORMATION
  Report Type: Spontaneous
  Country: US (occurrence: US)
  Receive Date: 20131125
  Receipt Date: 20131125
  Transmission Date: 20140711
  Serious: No
  Sender: FDA-Public Use
  Company Number: US-PFIZER INC-2013334194

PATIENT
  Age: 50 Year
  Sex: Female
  Weight: 49.89 kg

DRUGS (3)
  1. MORPHINE SULFATE [Suspect]
     Indication: PAIN
     Dosage: 30 MG, UNK
     Dates: start: 2011
  2. MORPHINE [Suspect]
     Indication: PAIN
     Dosage: 15 MG, UNK
     Dates: start: 2012
  3. XANAX [Concomitant]
     Indication: ANXIETY
     Dosage: 0.25 MG, 2X/DAY

REACTIONS (1)
  - Drug ineffective [Unknown]
